FAERS Safety Report 11115269 (Version 3)
Quarter: 2016Q1

REPORT INFORMATION
  Report Type: Spontaneous
  Country: JP (occurrence: JP)
  Receive Date: 20150515
  Receipt Date: 20160304
  Transmission Date: 20160525
  Serious: Yes (Other)
  Sender: FDA-Public Use
  Company Number: JP-ASTRAZENECA-2015SE44095

PATIENT
  Sex: Female

DRUGS (1)
  1. FASLODEX [Suspect]
     Active Substance: FULVESTRANT
     Dosage: DOSE UNKNOWN
     Route: 030
     Dates: start: 2012

REACTIONS (3)
  - Incorrect route of drug administration [Unknown]
  - Presyncope [Unknown]
  - Anaphylactoid shock [Unknown]

NARRATIVE: CASE EVENT DATE: 20150507
